FAERS Safety Report 8919959 (Version 1)
Quarter: 2012Q4

REPORT INFORMATION
  Report Type: 
  Country: US (occurrence: US)
  Receive Date: 20121121
  Receipt Date: 20121121
  Transmission Date: 20130627
  Serious: No
  Sender: FDA-Public Use
  Company Number: US-BAYER-2012-120734

PATIENT
  Age: 97 Year
  Sex: Female
  Weight: 36 kg

DRUGS (1)
  1. ALEVE CAPLET/TABLET,MIDOL EXTENDED RELIEF CAPLET [Suspect]
     Indication: PAIN RELIEF
     Dosage: 1 DF, QD
     Route: 048
     Dates: start: 201104

REACTIONS (2)
  - Oedema peripheral [Not Recovered/Not Resolved]
  - Incorrect drug administration duration [None]
